FAERS Safety Report 23539870 (Version 1)
Quarter: 2024Q1

REPORT INFORMATION
  Report Type: Spontaneous
  Country: US (occurrence: US)
  Receive Date: 20240219
  Receipt Date: 20240219
  Transmission Date: 20240409
  Serious: No
  Sender: FDA-Public Use
  Company Number: US-CTI BIOPHARMA-2024US04502

PATIENT

DRUGS (12)
  1. VONJO [Suspect]
     Active Substance: PACRITINIB
     Indication: Leukaemia
     Dosage: 200 MG, BID
     Route: 048
     Dates: start: 20231218
  2. BENADRYL [Concomitant]
     Active Substance: DIPHENHYDRAMINE HYDROCHLORIDE
  3. NAPROXEN [Concomitant]
     Active Substance: NAPROXEN
  4. EPIPEN [Concomitant]
     Active Substance: EPINEPHRINE
  5. EUCRISA [Concomitant]
     Active Substance: CRISABOROLE
  6. FLONASE [Concomitant]
     Active Substance: FLUTICASONE PROPIONATE
  7. IBUPROFEN [Concomitant]
     Active Substance: IBUPROFEN
  8. LOPERAMIDE [Concomitant]
     Active Substance: LOPERAMIDE
  9. METRONIDAZOLE [Concomitant]
     Active Substance: METRONIDAZOLE
  10. OMEPRAZOLE [Concomitant]
     Active Substance: OMEPRAZOLE
  11. MULTIVITAMIN IRON [Concomitant]
  12. PROCHLORPERAZINE [Concomitant]
     Active Substance: PROCHLORPERAZINE

REACTIONS (2)
  - Off label use [Unknown]
  - Diarrhoea [Unknown]
